FAERS Safety Report 5831236-0 (Version None)
Quarter: 2008Q3

REPORT INFORMATION
  Report Type: 
  Country: None (occurrence: None)
  Receive Date: 20080801
  Receipt Date: 20080314
  Transmission Date: 20090109
  Serious: No
  Sender: FDA-Public Use
  Company Number: US-BRISTOL-MYERS SQUIBB COMPANY-14116560

PATIENT
  Age: 70 Year
  Sex: Female
  Weight: 61 kg

DRUGS (8)
  1. COUMADIN [Suspect]
     Indication: ATRIAL FIBRILLATION
     Dosage: 1DF=1-1.5TAB 20FEB08 1TAB QD  INCREASED TO 1.5TAB QD DECREASED TO 1.5TAB(2DAY/WK)+ 1TAB(5 DAYS/WK)
     Dates: start: 20080220
  2. ATENOLOL [Concomitant]
  3. DIGITEK [Concomitant]
  4. VYTORIN [Concomitant]
  5. ARMOUR THYROID [Concomitant]
  6. MULTI-VITAMIN [Concomitant]
  7. CALCIUM + MAGNESIUM [Concomitant]
  8. FLAXSEED OIL [Concomitant]

REACTIONS (2)
  - PAIN IN EXTREMITY [None]
  - RASH MACULAR [None]
